FAERS Safety Report 7815959-X (Version None)
Quarter: 2011Q4

REPORT INFORMATION
  Report Type: 
  Country: None (occurrence: None)
  Receive Date: 20111014
  Receipt Date: 20111007
  Transmission Date: 20120403
  Serious: Yes (Other)
  Sender: FDA-Public Use
  Company Number: US-MERCK-1104USA00897

PATIENT
  Age: 59 Year
  Sex: Female

DRUGS (3)
  1. EVISTA [Concomitant]
     Route: 065
     Dates: start: 20000101
  2. FOSAMAX [Suspect]
     Indication: OSTEOPOROSIS
     Route: 048
     Dates: start: 20000101, end: 20071001
  3. FOSAMAX [Suspect]
     Route: 048
     Dates: end: 20080508

REACTIONS (9)
  - TOOTH IMPACTED [None]
  - ORAL TORUS [None]
  - PERICORONITIS [None]
  - BASAL CELL CARCINOMA [None]
  - DEFORMITY [None]
  - OSTEONECROSIS OF JAW [None]
  - MITRAL VALVE PROLAPSE [None]
  - OEDEMA MOUTH [None]
  - PAPILLOMA VIRAL INFECTION [None]
